FAERS Safety Report 5645058-7 (Version None)
Quarter: 2008Q1

REPORT INFORMATION
  Report Type: 
  Country: None (occurrence: None)
  Receive Date: 20080229
  Receipt Date: 20080220
  Transmission Date: 20080703
  Serious: Yes (Death, Life-Threatening, Hospitalization, Other)
  Sender: FDA-Public Use
  Company Number: GB-JNJFOC-20080200952

PATIENT
  Sex: Female
  Weight: 65 kg

DRUGS (8)
  1. REMICADE [Suspect]
     Indication: RHEUMATOID ARTHRITIS
     Route: 042
  2. DIHYDROCODEINE [Concomitant]
  3. FOLIC ACID [Concomitant]
  4. INSULIN [Concomitant]
  5. METFORMIN HCL [Concomitant]
  6. VIOXX [Concomitant]
  7. METHOTREXATE [Concomitant]
  8. AZATHIOPRINE [Concomitant]

REACTIONS (2)
  - PNEUMONIA ASPIRATION [None]
  - URINARY TRACT INFECTION [None]
